FAERS Safety Report 7891843-0 (Version None)
Quarter: 2011Q4

REPORT INFORMATION
  Report Type: 
  Country: None (occurrence: None)
  Receive Date: 20111103
  Receipt Date: 20110810
  Transmission Date: 20120403
  Serious: No
  Sender: FDA-Public Use
  Company Number: US-AMGEN-USASP2011040802

PATIENT
  Age: 47 Year
  Sex: Female
  Weight: 82.54 kg

DRUGS (7)
  1. METHOTREXATE [Concomitant]
     Dosage: 2.5 MG, UNK
  2. SERTRALINE HYDROCHLORIDE [Concomitant]
     Dosage: 25 MG, UNK
  3. PRILOSEC [Concomitant]
     Dosage: 10 MG, UNK
  4. LOVASTATIN [Concomitant]
     Dosage: 10 MG, UNK
  5. ENBREL [Suspect]
     Indication: PRODUCT USED FOR UNKNOWN INDICATION
     Dosage: 50 MG, QWK
     Route: 058
  6. FOLIC ACID [Concomitant]
     Dosage: 1 MG, UNK
  7. NABUMETONE [Concomitant]
     Dosage: 750 MG, UNK

REACTIONS (3)
  - INJECTION SITE PAIN [None]
  - INJECTION SITE SWELLING [None]
  - INJECTION SITE RASH [None]
